FAERS Safety Report 21530121 (Version 1)
Quarter: 2022Q4

REPORT INFORMATION
  Report Type: Report from Study
  Country: GB (occurrence: GB)
  Receive Date: 20221031
  Receipt Date: 20221031
  Transmission Date: 20230112
  Serious: Yes (Other)
  Sender: FDA-Public Use
  Company Number: GB-BRISTOL-MYERS SQUIBB COMPANY-2022-123985

PATIENT
  Age: 64 Year
  Sex: Male

DRUGS (6)
  1. DEXAMETHASONE [Suspect]
     Active Substance: DEXAMETHASONE
     Indication: Product used for unknown indication
     Dosage: UNIT DOSE : 40 MG, THERAPY END DATE : NOT ASKED
     Route: 048
     Dates: start: 20150806
  2. DEXAMETHASONE [Suspect]
     Active Substance: DEXAMETHASONE
     Dosage: UNIT DOSE : 40 MG, THERAPY END DATE : NOT ASKED
     Route: 065
     Dates: start: 20150820
  3. DEXAMETHASONE [Suspect]
     Active Substance: DEXAMETHASONE
     Dosage: UNIT DOSE : 40 MG, THERAPY END DATE : NOT ASKED
     Route: 065
     Dates: start: 20150827
  4. DEXAMETHASONE [Suspect]
     Active Substance: DEXAMETHASONE
     Dosage: UNIT DOSE : 40 MG, THERAPY END DATE : NOT ASKED
     Route: 065
     Dates: start: 20150813
  5. POMALIDOMIDE [Suspect]
     Active Substance: POMALIDOMIDE
     Indication: Plasma cell myeloma
     Dosage: UNIT DOSE : 4 MG, THERAPY DURATION : 21 DAYS
     Route: 065
     Dates: start: 20150806, end: 20150826
  6. POMALIDOMIDE [Suspect]
     Active Substance: POMALIDOMIDE
     Dosage: THERAPY DURATION : 7 DAYS
     Route: 065
     Dates: start: 20150827, end: 20150902

REACTIONS (1)
  - Neutropenia [Recovered/Resolved]

NARRATIVE: CASE EVENT DATE: 20150825
